FAERS Safety Report 16775950 (Version 3)
Quarter: 2022Q1

REPORT INFORMATION
  Report Type: Spontaneous
  Country: US (occurrence: US)
  Receive Date: 20190905
  Receipt Date: 20220125
  Transmission Date: 20220423
  Serious: No
  Sender: FDA-Public Use
  Company Number: US-PFIZER INC-2019382292

PATIENT
  Age: 72 Year
  Sex: Female

DRUGS (2)
  1. XELJANZ XR [Suspect]
     Active Substance: TOFACITINIB CITRATE
     Dosage: 11 MG
  2. XELJANZ XR [Suspect]
     Active Substance: TOFACITINIB CITRATE
     Dosage: 1 DF, 1X/DAY (TAKE 1 TABLET BY MOUTH EVERY DAY)
     Route: 048

REACTIONS (4)
  - Herpes zoster [Unknown]
  - Bronchitis [Unknown]
  - Sinusitis [Unknown]
  - Product prescribing issue [Unknown]
